FAERS Safety Report 4920004-X (Version None)
Quarter: 2006Q1

REPORT INFORMATION
  Report Type: 
  Country: None (occurrence: None)
  Receive Date: 20060223
  Receipt Date: 20051114
  Transmission Date: 20060701
  Serious: Yes (Hospitalization, Other)
  Sender: FDA-Public Use
  Company Number: US-AVENTIS-200519489US

PATIENT
  Sex: Male
  Weight: 129.53 kg

DRUGS (29)
  1. LANTUS [Suspect]
     Indication: DIABETES MELLITUS NON-INSULIN-DEPENDENT
     Dosage: DOSE: 10 UNITS TITRATED TO 17, THEN TO 22
     Dates: start: 20050101, end: 20050801
  2. LANTUS [Suspect]
     Dates: start: 20050801, end: 20050801
  3. LANTUS [Suspect]
     Dates: start: 20050818, end: 20050901
  4. AMARYL [Suspect]
     Indication: DIABETES MELLITUS NON-INSULIN-DEPENDENT
     Dosage: DOSE: UNK
     Route: 048
     Dates: start: 20030916
  5. AMARYL [Suspect]
     Dosage: DOSE: 1-4 MG
     Route: 048
     Dates: start: 20040622
  6. AMARYL [Suspect]
     Route: 048
     Dates: start: 20050101, end: 20050802
  7. AMARYL [Suspect]
     Dosage: DOSE: 1-2
     Route: 048
     Dates: start: 20050808, end: 20050901
  8. AMARYL [Suspect]
     Dates: start: 20050923
  9. AMARYL [Suspect]
     Dosage: DOSE: 1-2
     Route: 048
     Dates: start: 20051101, end: 20051201
  10. AMARYL [Suspect]
     Dates: start: 20060105
  11. MICRONASE [Suspect]
     Dates: start: 20051101, end: 20051101
  12. NPH INSULIN [Suspect]
     Dosage: DOSE: UNK
     Dates: start: 20050801, end: 20050801
  13. GLUCOTROL XL [Suspect]
  14. AVANDIA [Suspect]
     Dates: start: 20010101
  15. ACTOS [Suspect]
     Dates: start: 20030601
  16. STARLIX [Suspect]
     Dates: start: 20030201
  17. COUMADIN [Concomitant]
     Indication: THROMBOSIS PROPHYLAXIS
     Route: 048
     Dates: start: 20040224
  18. AVAPRO [Concomitant]
     Indication: BLOOD PRESSURE
  19. TIAZAC [Concomitant]
     Route: 048
  20. LASIX [Concomitant]
     Indication: DIURETIC THERAPY
  21. LASIX [Concomitant]
     Route: 048
     Dates: start: 20050301
  22. K-DUR 10 [Concomitant]
  23. OXYGEN [Concomitant]
     Indication: DYSPNOEA
  24. SYNTHROID [Concomitant]
     Indication: HYPOTHYROIDISM
     Dates: start: 20041201
  25. PRAVACHOL [Concomitant]
     Indication: HYPERLIPIDAEMIA
     Route: 048
     Dates: start: 20050101, end: 20050301
  26. PRAVACHOL [Concomitant]
     Dates: start: 20050301
  27. VICODIN [Concomitant]
     Indication: PAIN
     Route: 048
  28. COLACE [Concomitant]
     Route: 048
  29. ALBUTEROL [Concomitant]
     Dosage: DOSE: UNK

REACTIONS (47)
  - AORTIC ARTERIOSCLEROSIS [None]
  - ASTHENIA [None]
  - BLOOD GLUCOSE INCREASED [None]
  - CARDIAC FAILURE CONGESTIVE [None]
  - CARDIAC MURMUR [None]
  - CATARACT [None]
  - CORONARY ARTERY DISEASE [None]
  - COUGH [None]
  - DEPRESSION [None]
  - DYSPNOEA [None]
  - DYSPNOEA EXERTIONAL [None]
  - FATIGUE [None]
  - FEELING JITTERY [None]
  - FLANK PAIN [None]
  - HAEMOPTYSIS [None]
  - HOSPITALISATION [None]
  - HYPERGLYCAEMIA [None]
  - HYPERLIPIDAEMIA [None]
  - HYPOTHYROIDISM [None]
  - INFLUENZA [None]
  - INITIAL INSOMNIA [None]
  - INSOMNIA [None]
  - INTERSTITIAL LUNG DISEASE [None]
  - LUNG NEOPLASM [None]
  - LYMPHADENOPATHY [None]
  - LYMPHADENOPATHY MEDIASTINAL [None]
  - MEMORY IMPAIRMENT [None]
  - MITRAL VALVE INCOMPETENCE [None]
  - MUSCLE TWITCHING [None]
  - MUSCULOSKELETAL STIFFNESS [None]
  - NASOPHARYNGITIS [None]
  - NERVOUSNESS [None]
  - OEDEMA PERIPHERAL [None]
  - PITTING OEDEMA [None]
  - PLEURAL EFFUSION [None]
  - PNEUMONIA [None]
  - PULMONARY EMBOLISM [None]
  - PULMONARY FIBROSIS [None]
  - RENAL CYST [None]
  - RESTLESS LEGS SYNDROME [None]
  - SELF-MEDICATION [None]
  - SKIN CANDIDA [None]
  - TREMOR [None]
  - UPPER RESPIRATORY TRACT INFECTION [None]
  - VENTRICULAR HYPERTROPHY [None]
  - VENTRICULAR TACHYCARDIA [None]
  - VIRAL UPPER RESPIRATORY TRACT INFECTION [None]
